FAERS Safety Report 9311717 (Version 4)
Quarter: 2014Q4

REPORT INFORMATION
  Report Type: Spontaneous
  Country: US (occurrence: US)
  Receive Date: 20130528
  Receipt Date: 20141231
  Transmission Date: 20150529
  Serious: Yes (Death, Hospitalization, Disabling, Other)
  Sender: FDA-Public Use
  Company Number: US-009507513-1305USA014566

PATIENT
  Sex: Male
  Weight: 126.98 kg

DRUGS (4)
  1. FENOFIBRATE. [Concomitant]
     Active Substance: FENOFIBRATE
     Indication: HYPERTRIGLYCERIDAEMIA
     Dosage: 54-67 MG QD
     Dates: start: 20100428
  2. ASPIRIN. [Concomitant]
     Active Substance: ASPIRIN
     Indication: DIABETIC NEUROPATHY
     Dosage: 81 MG, QD
     Dates: start: 20100428
  3. JANUMET [Suspect]
     Active Substance: METFORMIN HYDROCHLORIDE\SITAGLIPTIN PHOSPHATE
     Dosage: 50 MG/500 MG, QD
     Route: 048
  4. JANUMET [Suspect]
     Active Substance: METFORMIN HYDROCHLORIDE\SITAGLIPTIN PHOSPHATE
     Indication: TYPE 2 DIABETES MELLITUS
     Dosage: 50 MG/500 MG, BID
     Route: 048
     Dates: start: 20100428, end: 20110311

REACTIONS (71)
  - Pancreatic carcinoma metastatic [Fatal]
  - Bile duct stent insertion [Unknown]
  - Cholelithiasis [Unknown]
  - Chills [Unknown]
  - Shoulder operation [Unknown]
  - Abdominal distension [Unknown]
  - Deep vein thrombosis [Unknown]
  - Small intestinal obstruction [Unknown]
  - Hypokalaemia [Unknown]
  - Diarrhoea [Unknown]
  - Blood creatinine increased [Recovered/Resolved]
  - Metastases to adrenals [Unknown]
  - Biliary sepsis [Unknown]
  - Cholangitis [Unknown]
  - Bile duct stent insertion [Unknown]
  - Pancreatitis acute [Unknown]
  - Autonomic neuropathy [Unknown]
  - Benign prostatic hyperplasia [Unknown]
  - Agitation [Unknown]
  - Erosive duodenitis [Unknown]
  - Pain [Unknown]
  - Pancreatitis [Unknown]
  - Localised intraabdominal fluid collection [Unknown]
  - Insomnia [Unknown]
  - Abdominal pain upper [Not Recovered/Not Resolved]
  - Ascites [Unknown]
  - Back injury [Not Recovered/Not Resolved]
  - Dehydration [Unknown]
  - Hepatic steatosis [Unknown]
  - Eructation [Unknown]
  - Musculoskeletal stiffness [Unknown]
  - Urinary retention [Unknown]
  - Malnutrition [Unknown]
  - Stent placement [Unknown]
  - Drug ineffective [Unknown]
  - Metastases to liver [Not Recovered/Not Resolved]
  - Gastritis erosive [Unknown]
  - Restlessness [Unknown]
  - Decubitus ulcer [Unknown]
  - Anaemia of chronic disease [Unknown]
  - Pericardial effusion [Unknown]
  - Flatulence [Unknown]
  - Upper respiratory tract infection [Unknown]
  - Paranoia [Unknown]
  - Chest pain [Unknown]
  - Gynaecomastia [Unknown]
  - Depression [Unknown]
  - Fall [Unknown]
  - Abnormal loss of weight [Unknown]
  - Generalised oedema [Unknown]
  - Constipation [Unknown]
  - Cholecystectomy [Unknown]
  - Cholecystitis acute [Unknown]
  - Failure to thrive [Unknown]
  - Abnormal loss of weight [Unknown]
  - Anxiety [Unknown]
  - Peptic ulcer [Recovering/Resolving]
  - Dementia [Unknown]
  - Chronic obstructive pulmonary disease [Not Recovered/Not Resolved]
  - Atelectasis [Unknown]
  - Bile duct stenosis [Unknown]
  - Device occlusion [Unknown]
  - Oesophagitis ulcerative [Unknown]
  - Abdominal abscess [Unknown]
  - Depression [Unknown]
  - Abdominal distension [Unknown]
  - Hepatic cirrhosis [Unknown]
  - Anxiety disorder [Not Recovered/Not Resolved]
  - Pleural effusion [Unknown]
  - Nausea [Unknown]
  - Glomerular filtration rate decreased [Unknown]

NARRATIVE: CASE EVENT DATE: 201004
